FAERS Safety Report 5103860-4 (Version None)
Quarter: 2006Q3

REPORT INFORMATION
  Report Type: 
  Country: None (occurrence: None)
  Receive Date: 20060913
  Receipt Date: 20060912
  Transmission Date: 20061208
  Serious: Yes (Congenital Anomaly)
  Sender: FDA-Public Use
  Company Number: 2006101701

PATIENT
  Sex: Male

DRUGS (3)
  1. EPIVIR [Suspect]
     Indication: HIV INFECTION
  2. RETROVIR [Suspect]
     Indication: HIV INFECTION
  3. VIRACEPT [Suspect]
     Indication: HIV INFECTION

REACTIONS (2)
  - DRUG EXPOSURE DURING PREGNANCY [None]
  - HYPOSPADIAS [None]
